FAERS Safety Report 8056228-5 (Version None)
Quarter: 2012Q1

REPORT INFORMATION
  Report Type: 
  Country: None (occurrence: None)
  Receive Date: 20120119
  Receipt Date: 20120109
  Transmission Date: 20120608
  Serious: Yes (Hospitalization)
  Sender: FDA-Public Use
  Company Number: PHHY2012BR003250

PATIENT
  Sex: Male

DRUGS (6)
  1. METOPROLOL SUCCINATE [Concomitant]
     Indication: ARRHYTHMIA
  2. SIMVASTATIN [Suspect]
     Indication: ARRHYTHMIA
  3. SUSTRATE [Concomitant]
     Indication: ARRHYTHMIA
  4. SIMVASTATIN [Suspect]
     Indication: CARDIAC DISORDER
     Route: 048
  5. METOPROLOL SUCCINATE [Concomitant]
     Indication: CARDIAC DISORDER
     Route: 048
  6. SUSTRATE [Concomitant]
     Indication: CARDIAC DISORDER

REACTIONS (1)
  - BLOOD PRESSURE INCREASED [None]
